FAERS Safety Report 10258806 (Version 1)
Quarter: 2014Q2

REPORT INFORMATION
  Report Type: Spontaneous
  Country: US (occurrence: US)
  Receive Date: 20140625
  Receipt Date: 20140625
  Transmission Date: 20141212
  Serious: Yes (Other)
  Sender: FDA-Public Use
  Company Number: US-ASTELLAS-2013US007929

PATIENT
  Age: 58 Year
  Sex: Female

DRUGS (1)
  1. VESICARE [Suspect]
     Indication: POLLAKIURIA
     Route: 048

REACTIONS (4)
  - Urinary retention [Unknown]
  - Burning sensation [Unknown]
  - Constipation [Unknown]
  - Dyspepsia [Unknown]
